FAERS Safety Report 8961058 (Version 4)
Quarter: 2013Q2

REPORT INFORMATION
  Report Type: Report from Study
  Country: US (occurrence: US)
  Receive Date: 20121212
  Receipt Date: 20130430
  Transmission Date: 20140414
  Serious: Yes (Death, Hospitalization, Other)
  Sender: FDA-Public Use
  Company Number: US-ACTELION-A-US2012-74203

PATIENT
  Age: 42 Year
  Sex: Female

DRUGS (11)
  1. VELETRI [Suspect]
     Indication: PULMONARY ARTERIAL HYPERTENSION
     Dosage: 24 NG/KG, PER MIN
     Route: 042
     Dates: start: 20120119
  2. VELETRI [Suspect]
     Dosage: 20 NG/KG, UNK
     Route: 042
  3. VELETRI [Suspect]
     Dosage: 16 NG/KG, UNK
     Route: 042
  4. VELETRI [Suspect]
     Dosage: 14 NG/KG, UNK
     Route: 042
     Dates: start: 20121116, end: 20121117
  5. COUMADIN [Concomitant]
     Dosage: 16 UNK, UNK
     Dates: start: 20120119
  6. OXYCODONE [Concomitant]
     Dosage: UNK
     Dates: start: 20120119
  7. POTASSIUM CHLORIDE [Concomitant]
     Dosage: UNK
     Dates: start: 20120424
  8. METOLAZONE [Concomitant]
     Dosage: UNK
     Dates: start: 20120501
  9. MAGNESIUM OXIDE [Concomitant]
     Dosage: UNK
     Dates: start: 20120501
  10. SPIRONOLACTONE [Concomitant]
     Dosage: UNK
     Dates: start: 20120501
  11. ONDANSETRON [Concomitant]
     Dosage: UNK
     Dates: start: 20120323

REACTIONS (24)
  - Death [Fatal]
  - Acute respiratory failure [Not Recovered/Not Resolved]
  - Right ventricular failure [Not Recovered/Not Resolved]
  - Disease progression [Not Recovered/Not Resolved]
  - Pulmonary veno-occlusive disease [Not Recovered/Not Resolved]
  - Pulmonary arterial hypertension [Not Recovered/Not Resolved]
  - Condition aggravated [Not Recovered/Not Resolved]
  - Pulmonary haemorrhage [Unknown]
  - Lymphadenopathy [Unknown]
  - Lymphadenopathy mediastinal [Unknown]
  - Malnutrition [Unknown]
  - Atrial septal defect [Unknown]
  - Acute pulmonary oedema [Unknown]
  - Renal failure acute [Unknown]
  - Dyspnoea [Not Recovered/Not Resolved]
  - Respiratory failure [Not Recovered/Not Resolved]
  - Thrombocytopenia [Unknown]
  - Lung infiltration [Unknown]
  - Exercise tolerance decreased [Not Recovered/Not Resolved]
  - Tachycardia [Not Recovered/Not Resolved]
  - Leukocytosis [Unknown]
  - Respiratory rate increased [Not Recovered/Not Resolved]
  - Fluid overload [Not Recovered/Not Resolved]
  - Hypoxia [Not Recovered/Not Resolved]
